FAERS Safety Report 18480382 (Version 3)
Quarter: 2021Q2

REPORT INFORMATION
  Report Type: Spontaneous
  Country: US (occurrence: US)
  Receive Date: 20201109
  Receipt Date: 20210627
  Transmission Date: 20210717
  Serious: No
  Sender: FDA-Public Use
  Company Number: US-LUPIN PHARMACEUTICALS INC.-2020-07675

PATIENT
  Age: 19 Year
  Sex: Male

DRUGS (2)
  1. DEPO?MEDROL [Concomitant]
     Active Substance: METHYLPREDNISOLONE ACETATE
     Indication: PRODUCT USED FOR UNKNOWN INDICATION
     Dosage: UNK
     Route: 065
  2. ALBUTEROL SULFATE INHALATION AEROSOL, 90 MCG/ACTUATION [Suspect]
     Active Substance: ALBUTEROL SULFATE
     Indication: ASTHMA
     Dosage: UNK UNK, QD (2 PUFF THREE TIMES DAILY)

REACTIONS (3)
  - Device delivery system issue [Unknown]
  - Chest discomfort [Unknown]
  - Device malfunction [Unknown]

NARRATIVE: CASE EVENT DATE: 20201012
